APPROVED DRUG PRODUCT: ENALAPRIL MALEATE
Active Ingredient: ENALAPRIL MALEATE
Strength: 2.5MG
Dosage Form/Route: TABLET;ORAL
Application: A075583 | Product #001
Applicant: APOTHECON INC DIV BRISTOL MYERS SQUIBB
Approved: Aug 22, 2000 | RLD: No | RS: No | Type: DISCN